FAERS Safety Report 7893946-3 (Version None)
Quarter: 2011Q4

REPORT INFORMATION
  Report Type: 
  Country: None (occurrence: None)
  Receive Date: 20111104
  Receipt Date: 20111026
  Transmission Date: 20120403
  Serious: Yes (Other)
  Sender: FDA-Public Use
  Company Number: US-NOVOPROD-333680

PATIENT

DRUGS (9)
  1. DYAZIDE [Concomitant]
     Indication: HYPERTENSION
     Dosage: UNKNOWN
     Route: 065
     Dates: end: 20110801
  2. DOXYCYCLINE [Concomitant]
     Indication: ROSACEA
     Dosage: UNKNOWN
     Route: 065
     Dates: end: 20110801
  3. VICTOZA [Suspect]
     Indication: DIABETES MELLITUS
     Dosage: UNK
     Route: 058
     Dates: start: 20110601, end: 20110801
  4. GLIPIZIDE [Concomitant]
     Indication: DIABETES MELLITUS
     Dosage: UNKNOWN
     Route: 065
     Dates: end: 20110801
  5. METFORMIN HCL [Concomitant]
     Indication: DIABETES MELLITUS
     Dosage: UNKNOWN
     Route: 048
     Dates: end: 20110801
  6. ATENOLOL [Concomitant]
     Indication: HYPERTENSION
     Dosage: UNKNOWN
     Route: 065
     Dates: end: 20110801
  7. LOVAZA [Concomitant]
     Indication: LIPIDS
     Dosage: UNKNOWN
     Route: 065
     Dates: end: 20110801
  8. CRESTOR [Concomitant]
     Indication: LIPIDS
     Dosage: UNKNOWN
     Route: 065
     Dates: end: 20110801
  9. LISINOPRIL [Concomitant]
     Indication: HYPERTENSION
     Dosage: UNKNOWN
     Route: 065
     Dates: end: 20110801

REACTIONS (3)
  - SMALL CELL LUNG CANCER METASTATIC [None]
  - WEIGHT DECREASED [None]
  - BLOOD GLUCOSE ABNORMAL [None]
